FAERS Safety Report 5246488-8 (Version None)
Quarter: 2007Q1

REPORT INFORMATION
  Report Type: 
  Country: None (occurrence: None)
  Receive Date: 20070226
  Receipt Date: 20070216
  Transmission Date: 20070707
  Serious: Yes (Death)
  Sender: FDA-Public Use
  Company Number: US-BRISTOL-MYERS SQUIBB COMPANY-13614540

PATIENT
  Age: 34 Year
  Sex: Male

DRUGS (3)
  1. CEENU [Suspect]
     Indication: ANAPLASTIC ASTROCYTOMA
     Route: 048
     Dates: start: 20061115, end: 20061115
  2. PROCARBAZINE [Concomitant]
     Route: 048
  3. ONCOVIN [Concomitant]
     Route: 042

REACTIONS (1)
  - MALIGNANT NEOPLASM PROGRESSION [None]
